FAERS Safety Report 7092325-9 (Version None)
Quarter: 2010Q4

REPORT INFORMATION
  Report Type: 
  Country: None (occurrence: None)
  Receive Date: 20101109
  Receipt Date: 20101029
  Transmission Date: 20110411
  Serious: Yes (Life-Threatening, Hospitalization)
  Sender: FDA-Public Use
  Company Number: FR-BRISTOL-MYERS SQUIBB COMPANY-15372733

PATIENT
  Age: 62 Year
  Sex: Male

DRUGS (7)
  1. GLUCOPHAGE [Suspect]
     Indication: TYPE 2 DIABETES MELLITUS
     Route: 048
     Dates: end: 20100810
  2. LERCANIDIPINE [Concomitant]
     Dosage: 20MG TABS
     Route: 048
     Dates: end: 20100808
  3. TRIATEC [Concomitant]
     Dosage: 5MG TAB
     Route: 048
     Dates: end: 20100810
  4. PRAVASTATIN MR [Concomitant]
     Dosage: 20MG TABS
     Route: 048
  5. PREVISCAN [Concomitant]
     Dosage: 1 DF=1/4 ALTERNATED WITH 1/2 TABS
     Route: 048
     Dates: end: 20100809
  6. LANZOR [Concomitant]
     Dosage: 15MG TABS
     Route: 048
  7. PYOSTACINE [Concomitant]
     Dates: start: 20100805, end: 20100810

REACTIONS (5)
  - DIARRHOEA [None]
  - FALL [None]
  - METABOLIC ACIDOSIS [None]
  - RENAL FAILURE [None]
  - WOUND NECROSIS [None]
